FAERS Safety Report 11431743 (Version 1)
Quarter: 2015Q3

REPORT INFORMATION
  Report Type: Spontaneous
  Country: DE (occurrence: DE)
  Receive Date: 20150828
  Receipt Date: 20150828
  Transmission Date: 20151125
  Serious: Yes (Other)
  Sender: FDA-Public Use
  Company Number: DE-PFIZER INC-2015237157

PATIENT
  Age: 71 Year
  Sex: Female
  Weight: 97.5 kg

DRUGS (9)
  1. CABERGOLINE. [Concomitant]
     Active Substance: CABERGOLINE
     Dosage: 0.5 MG, 2X/WEEK
  2. SOMATOSTATIN [Concomitant]
     Active Substance: SOMATOSTATIN
     Dosage: UNK
     Dates: start: 2009, end: 2013
  3. CALCIUM [Concomitant]
     Active Substance: CALCIUM
  4. SOMAVERT [Suspect]
     Active Substance: PEGVISOMANT
     Indication: PROLACTINOMA
     Dosage: 20 MG, ALTERNATE DAY
     Route: 058
     Dates: start: 2003
  5. METFORMIN [Concomitant]
     Active Substance: METFORMIN HYDROCHLORIDE
     Dosage: 2 DF, DAILY
  6. VITAMIN D /00107901/ [Concomitant]
     Active Substance: ERGOCALCIFEROL
  7. SOMAVERT [Suspect]
     Active Substance: PEGVISOMANT
     Indication: ACROMEGALY
  8. RAMILICH [Concomitant]
     Active Substance: RAMIPRIL
     Dosage: 0.5 (HALF), 1X/DAY
  9. L-THYROXIN [Concomitant]
     Active Substance: LEVOTHYROXINE SODIUM
     Dosage: 125 ?G, 1X/DAY

REACTIONS (5)
  - Drug effect incomplete [Unknown]
  - Inappropriate schedule of drug administration [Unknown]
  - Type 2 diabetes mellitus [Unknown]
  - Haemorrhoids [Not Recovered/Not Resolved]
  - Obesity [Unknown]
